FAERS Safety Report 6240146-9 (Version None)
Quarter: 2009Q2

REPORT INFORMATION
  Report Type: 
  Country: None (occurrence: None)
  Receive Date: 20090618
  Receipt Date: 20090618
  Transmission Date: 20091009
  Serious: Yes (Other)
  Sender: FDA-Public Use
  Company Number: None

PATIENT
  Age: 56 Year
  Sex: Female
  Weight: 65.7716 kg

DRUGS (1)
  1. AZOR [Suspect]
     Indication: HYPERTENSION
     Dosage: 1 TABLET DAILY
     Dates: start: 20090319, end: 20090615

REACTIONS (3)
  - COGNITIVE DISORDER [None]
  - MUSCLE SPASMS [None]
  - THINKING ABNORMAL [None]
